FAERS Safety Report 7910625-4 (Version None)
Quarter: 2011Q4

REPORT INFORMATION
  Report Type: 
  Country: None (occurrence: None)
  Receive Date: 20111111
  Receipt Date: 20111107
  Transmission Date: 20120403
  Serious: Yes (Other)
  Sender: FDA-Public Use
  Company Number: DE-PFIZER INC-2011271354

PATIENT
  Age: 58 Year
  Sex: Female

DRUGS (2)
  1. CELEBREX [Suspect]
     Indication: ARTHRITIS
     Dosage: 200 MG/DAY
  2. GINGER [Interacting]
     Dosage: UNK
     Dates: start: 20110101

REACTIONS (2)
  - DRUG INTERACTION [None]
  - ANAPHYLACTIC SHOCK [None]
